FAERS Safety Report 22692395 (Version 5)
Quarter: 2024Q1

REPORT INFORMATION
  Report Type: Spontaneous
  Country: US (occurrence: US)
  Receive Date: 20230711
  Receipt Date: 20240109
  Transmission Date: 20240410
  Serious: No
  Sender: FDA-Public Use
  Company Number: US-PFIZER INC-202300239480

PATIENT
  Age: 15 Year
  Sex: Male
  Weight: 46.259 kg

DRUGS (3)
  1. GENOTROPIN [Suspect]
     Active Substance: SOMATROPIN
     Indication: Short stature
     Dosage: 1.4 MG, DAILY
  2. GENOTROPIN [Suspect]
     Active Substance: SOMATROPIN
     Dosage: 1.6 MG
     Dates: start: 202101
  3. GENOTROPIN [Suspect]
     Active Substance: SOMATROPIN
     Dosage: 1.8 MG, DAILY
     Dates: start: 20210122

REACTIONS (3)
  - Drug dose omission by device [Unknown]
  - Device leakage [Unknown]
  - Device delivery system issue [Unknown]
